FAERS Safety Report 9716057 (Version 1)
Quarter: 2013Q4

REPORT INFORMATION
  Report Type: Spontaneous
  Country: US (occurrence: US)
  Receive Date: 20131127
  Receipt Date: 20131127
  Transmission Date: 20140711
  Serious: Yes (Other)
  Sender: FDA-Public Use
  Company Number: US-BAYER-2013-143377

PATIENT
  Age: 20 Year
  Sex: Female
  Weight: 121.54 kg

DRUGS (1)
  1. YASMIN [Suspect]

REACTIONS (1)
  - Thrombophlebitis [None]
